FAERS Safety Report 8266035-6 (Version None)
Quarter: 2012Q2

REPORT INFORMATION
  Report Type: 
  Country: None (occurrence: None)
  Receive Date: 20120406
  Receipt Date: 20120329
  Transmission Date: 20120825
  Serious: Yes (Hospitalization)
  Sender: FDA-Public Use
  Company Number: JP-ASTRAZENECA-2012SE22125

PATIENT
  Age: 59 Year
  Sex: Female

DRUGS (7)
  1. RASILEZ [Concomitant]
     Route: 048
  2. LASIX [Concomitant]
     Route: 065
  3. ALLOPURINOL [Concomitant]
     Route: 048
  4. CALCIUM CARBONATE [Concomitant]
     Route: 048
  5. TENORMIN [Concomitant]
     Route: 048
  6. CANDESARTAN CILEXETIL [Suspect]
     Indication: HYPERTENSION
     Route: 048
     Dates: start: 20041112, end: 20120107
  7. DOXAZOSIN MESYLATE [Concomitant]
     Route: 048

REACTIONS (1)
  - LIVER DISORDER [None]
